FAERS Safety Report 4467872-6 (Version None)
Quarter: 2004Q4

REPORT INFORMATION
  Report Type: 
  Country: None (occurrence: None)
  Receive Date: 20041007
  Receipt Date: 20040427
  Transmission Date: 20050328
  Serious: Yes (Death, Other)
  Sender: FDA-Public Use
  Company Number: PHBS2004JP05785

PATIENT
  Age: 70 Year
  Sex: Female
  Weight: 35 kg

DRUGS (3)
  1. TOFRANIL [Suspect]
     Indication: ANXIETY
     Dosage: 30 MG/D
     Route: 048
     Dates: start: 20040420, end: 20040425
  2. CERCINE [Suspect]
     Indication: ANXIETY
     Dosage: 6 MG/D
     Route: 048
     Dates: start: 20040414, end: 20040426
  3. RINDERON [Suspect]
     Indication: CARCINOMA
     Dosage: 2 MG/D
     Route: 048
     Dates: start: 20040419

REACTIONS (8)
  - AKATHISIA [None]
  - AMIMIA [None]
  - ANXIETY [None]
  - BREAST CANCER METASTATIC [None]
  - DYSPNOEA [None]
  - EXTRAPYRAMIDAL DISORDER [None]
  - METASTASES TO SPINE [None]
  - POST PROCEDURAL COMPLICATION [None]
